FAERS Safety Report 7854645-7 (Version None)
Quarter: 2011Q4

REPORT INFORMATION
  Report Type: 
  Country: None (occurrence: None)
  Receive Date: 20111026
  Receipt Date: 20111005
  Transmission Date: 20120403
  Serious: Yes (Hospitalization)
  Sender: FDA-Public Use
  Company Number: DE-ELI_LILLY_AND_COMPANY-DE201109008173

PATIENT
  Sex: Male

DRUGS (1)
  1. HUMALOG [Suspect]
     Indication: DIABETES MELLITUS
     Dosage: UNK UNK, OTHER
     Route: 058
     Dates: start: 19910101

REACTIONS (4)
  - LOSS OF CONSCIOUSNESS [None]
  - BLOOD GLUCOSE ABNORMAL [None]
  - INJECTION SITE INFLAMMATION [None]
  - BLOOD GLUCOSE INCREASED [None]
